FAERS Safety Report 16383223 (Version 2)
Quarter: 2019Q4

REPORT INFORMATION
  Report Type: Spontaneous
  Country: US (occurrence: US)
  Receive Date: 20190603
  Receipt Date: 20191004
  Transmission Date: 20200122
  Serious: Yes (Hospitalization, Other)
  Sender: FDA-Public Use
  Company Number: US-PFIZER INC-2017036840

PATIENT
  Age: 70 Year
  Sex: Female
  Weight: 59 kg

DRUGS (13)
  1. FLUOXETINE [Concomitant]
     Active Substance: FLUOXETINE HYDROCHLORIDE
     Dosage: 20 MG, DAILY (2 CAPSULE BY MOUTH DAILY)
     Route: 048
  2. DEXTROAMPHET SACCHARAT, AMPHET ASPARTATE, DEXTROAMPHET SULFATE AND AMPHET SULFAT [Concomitant]
     Active Substance: AMPHETAMINE ASPARTATE\AMPHETAMINE SULFATE\DEXTROAMPHETAMINE SACCHARATE\DEXTROAMPHETAMINE SULFATE
     Dosage: 10 MG, 2X/DAY (0.5/HALF TABLET BY MOUTH TWICE A DAY)
     Route: 048
     Dates: end: 201812
  3. LEVOTHYROXINE. [Concomitant]
     Active Substance: LEVOTHYROXINE
     Dosage: 150 UG, DAILY (1 CAPSULE BY MOUTH DAILY)
     Route: 048
  4. HYDROCHLOROTHIAZIDE. [Concomitant]
     Active Substance: HYDROCHLOROTHIAZIDE
     Dosage: 12.5 MG, DAILY (1 TABLET BY MOUTH DAILY)
     Route: 048
  5. PREDNISONE. [Concomitant]
     Active Substance: PREDNISONE
     Dosage: 20 MG, UNK (TABLET BY MOUTH AS DIRECTED; 3/DAY FOR 2 DAYS, 2/DAY FOR 2 DAYS, THEN 1/DAY FOR 2 DAYS)
     Route: 048
     Dates: end: 201812
  6. DOCUSATE SODIUM. [Concomitant]
     Active Substance: DOCUSATE SODIUM
     Dosage: 100 MG, DAILY
     Route: 048
  7. LYRICA [Suspect]
     Active Substance: PREGABALIN
     Indication: NEUROPATHY PERIPHERAL
     Dosage: 75 MG, 2X/DAY
     Route: 048
  8. TRIAMCINOLONE ACETONIDE. [Concomitant]
     Active Substance: TRIAMCINOLONE ACETONIDE
     Dosage: UNK, DAILY (1 APPLICATION APPLY ON THE SKIN DAILY)
     Route: 061
     Dates: end: 201812
  9. LIOTHYRONINE [Concomitant]
     Active Substance: LIOTHYRONINE
     Dosage: 25 UG, DAILY (1 TABLET BY MOUTH DAILY)
     Route: 048
  10. MUPIROCIN. [Concomitant]
     Active Substance: MUPIROCIN
     Dosage: (1 APPLICATION(S) AS DIRECTED EVERY 4-6 HOURS AROUND THE CLOCK)
     Route: 061
  11. CELEBREX [Concomitant]
     Active Substance: CELECOXIB
     Dosage: 200 MG, 2X/DAY  (1 CAPSULE(S) BY MOUTH DAILY)
     Route: 048
     Dates: end: 201812
  12. FOSAMAX [Concomitant]
     Active Substance: ALENDRONATE SODIUM
     Dosage: 70 MG, DAILY (1 TABLET BY MOUTH WEEKLY)
     Route: 048
     Dates: end: 201812
  13. MORPHINE [Concomitant]
     Active Substance: MORPHINE
     Dosage: UNK, 3X/DAY ( (0.5-1 TABLET BY MOUTH THREE TIMES A DAY AS NEEDED PRN)
     Route: 048

REACTIONS (1)
  - Gastric perforation [Recovered/Resolved]

NARRATIVE: CASE EVENT DATE: 2018
